FAERS Safety Report 6491815-7 (Version None)
Quarter: 2009Q4

REPORT INFORMATION
  Report Type: 
  Country: None (occurrence: None)
  Receive Date: 20091210
  Receipt Date: 20091201
  Transmission Date: 20100525
  Serious: Yes (Other)
  Sender: FDA-Public Use
  Company Number: 2009US004253

PATIENT
  Sex: Female

DRUGS (2)
  1. PROGRAF [Suspect]
     Indication: TRANSPLANT
  2. IMMUNOSUPPRESSIVE AGENTS () [Suspect]
     Indication: TRANSPLANT

REACTIONS (1)
  - MULTI-ORGAN FAILURE [None]
